FAERS Safety Report 6663439-X (Version None)
Quarter: 2010Q2

REPORT INFORMATION
  Report Type: 
  Country: None (occurrence: None)
  Receive Date: 20100401
  Receipt Date: 20100326
  Transmission Date: 20101027
  Serious: Yes (Hospitalization)
  Sender: FDA-Public Use
  Company Number: FR-BRISTOL-MYERS SQUIBB COMPANY-15036833

PATIENT
  Age: 53 Year
  Sex: Male

DRUGS (7)
  1. ORENCIA [Suspect]
     Indication: RHEUMATOID ARTHRITIS
     Dosage: 750 MG/INFUSION AT ONE INFUSION NO OF COURESE:15
     Route: 042
     Dates: start: 20080619, end: 20090908
  2. METOJECT [Suspect]
     Dates: start: 20040101
  3. CORTANCYL [Concomitant]
     Dates: start: 20040101
  4. FOSAMAX [Concomitant]
     Dates: start: 20040101
  5. CACIT [Concomitant]
     Dates: start: 20040101
  6. VITAMIN D3 [Concomitant]
     Dates: start: 20040101
  7. SPECIAFOLDINE [Concomitant]
     Dates: start: 20060101

REACTIONS (2)
  - LYMPHOPENIA [None]
  - THROMBOCYTOPENIA [None]
